FAERS Safety Report 6781103-3 (Version None)
Quarter: 2010Q2

REPORT INFORMATION
  Report Type: 
  Country: None (occurrence: None)
  Receive Date: 20100617
  Receipt Date: 20100617
  Transmission Date: 20101027
  Serious: Yes (Other)
  Sender: FDA-Public Use
  Company Number: None

PATIENT
  Age: 35 Year
  Sex: Female
  Weight: 84.8226 kg

DRUGS (2)
  1. RITUXAN [Suspect]
     Indication: ARTHROPATHY
     Dosage: 1000 MG X 1 NOW THER IN 2 WKS IV
     Route: 042
     Dates: start: 20100616
  2. RITUXAN [Suspect]
     Indication: VASCULITIS
     Dosage: 1000 MG X 1 NOW THER IN 2 WKS IV
     Route: 042
     Dates: start: 20100616

REACTIONS (2)
  - EYE SWELLING [None]
  - THROAT IRRITATION [None]
